FAERS Safety Report 8665393 (Version 5)
Quarter: 2013Q4

REPORT INFORMATION
  Report Type: Spontaneous
  Country: GB (occurrence: GB)
  Receive Date: 20120716
  Receipt Date: 20131108
  Transmission Date: 20140711
  Serious: Yes (Death)
  Sender: FDA-Public Use
  Company Number: GB-MSD-1207GBR001552

PATIENT
  Age: 45 Year
  Sex: Male
  Weight: 104.2 kg

DRUGS (7)
  1. MIRTAZAPINE [Suspect]
     Indication: DEPRESSED MOOD
     Dosage: 30 MG, UNK
     Route: 048
  2. ARIPIPRAZOLE [Suspect]
     Indication: SCHIZOPHRENIA
     Dosage: 10 MG, UNK
     Route: 048
  3. CITALOPRAM [Suspect]
     Indication: DEPRESSED MOOD
     Dosage: 40 MG, UNK
     Route: 048
  4. CLOZAPINE [Suspect]
     Indication: SCHIZOPHRENIA
     Dosage: 450 MG, UNK
     Route: 048
  5. CLOZARIL [Suspect]
     Indication: SCHIZOPHRENIA
     Dosage: 450 MG, UNK
  6. CLOZARIL [Suspect]
     Dosage: UNK
     Route: 048
     Dates: start: 20010701
  7. CLOZARIL [Suspect]
     Dosage: UNK
     Route: 048
     Dates: start: 19941205

REACTIONS (3)
  - Cardiac failure congestive [Fatal]
  - Congestive cardiomyopathy [Fatal]
  - Antipsychotic drug level above therapeutic [Unknown]
